FAERS Safety Report 5155815-1 (Version None)
Quarter: 2006Q4

REPORT INFORMATION
  Report Type: 
  Country: None (occurrence: None)
  Receive Date: 20061109
  Receipt Date: 20061029
  Transmission Date: 20070319
  Serious: Yes (Hospitalization)
  Sender: FDA-Public Use
  Company Number: M-06-0887

PATIENT
  Sex: Female
  Weight: 63.5036 kg

DRUGS (2)
  1. KLOR-CON M15 [Suspect]
     Indication: HYPOKALAEMIA
     Dosage: 15MEQ, INTERMITTENTLY, PO
     Route: 048
  2. SYNTHROID [Concomitant]

REACTIONS (1)
  - COLITIS ISCHAEMIC [None]
